FAERS Safety Report 16747501 (Version 3)
Quarter: 2019Q3

REPORT INFORMATION
  Report Type: Spontaneous
  Country: JP (occurrence: JP)
  Receive Date: 20190827
  Receipt Date: 20190910
  Transmission Date: 20191005
  Serious: Yes (Death, Other)
  Sender: FDA-Public Use
  Company Number: JP-TAKEDA-2019TJP019814

PATIENT
  Age: 76 Year
  Sex: Male

DRUGS (3)
  1. SOLDEM 3A [Concomitant]
     Active Substance: CARBOHYDRATES\POTASSIUM CHLORIDE\SODIUM CHLORIDE\SODIUM LACTATE
     Indication: FLUID REPLACEMENT
     Dosage: UNK UNK, QD
     Route: 050
     Dates: start: 20190814, end: 20190901
  2. TAKEPRON INTRAVENOUS 30MG. [Suspect]
     Active Substance: LANSOPRAZOLE
     Indication: GASTRIC HAEMORRHAGE
     Dosage: 30 MILLIGRAM, BID
     Route: 050
     Dates: start: 20190814, end: 20190901
  3. PAREPLUS [Concomitant]
     Active Substance: AMINO ACIDS\DEXTROSE\ELECTROLYTES NOS\VITAMINS
     Indication: FLUID REPLACEMENT
     Dosage: UNK UNK, QD
     Route: 050
     Dates: start: 20190815, end: 20190901

REACTIONS (3)
  - Gastric haemorrhage [Unknown]
  - Condition aggravated [Fatal]
  - Gastric cancer [Fatal]
